FAERS Safety Report 4439531-7 (Version None)
Quarter: 2004Q3

REPORT INFORMATION
  Report Type: 
  Country: None (occurrence: None)
  Receive Date: 20040901
  Receipt Date: 20040901
  Transmission Date: 20050211
  Serious: Yes (Hospitalization)
  Sender: FDA-Public Use
  Company Number: None

PATIENT
  Sex: Female
  Weight: 72.5755 kg

DRUGS (8)
  1. DOXAZOSIN [Suspect]
     Indication: HYPERTENSION
     Dosage: PO
     Route: 048
  2. ZIAC [Suspect]
     Indication: HYPERTENSION
     Dosage: PO
     Route: 048
  3. DYAZIDE [Suspect]
     Indication: HYPERTENSION
     Dosage: PO
     Route: 048
  4. AVAPRO [Concomitant]
  5. COUMADIN [Concomitant]
  6. LIPITOR [Concomitant]
  7. THORAZINE [Concomitant]
  8. AMARYL [Concomitant]

REACTIONS (2)
  - DIZZINESS [None]
  - ORTHOSTATIC HYPOTENSION [None]
